FAERS Safety Report 4373451-1 (Version None)
Quarter: 2004Q2

REPORT INFORMATION
  Report Type: 
  Country: None (occurrence: None)
  Receive Date: 20040603
  Receipt Date: 20040518
  Transmission Date: 20050107
  Serious: Yes (Other)
  Sender: FDA-Public Use
  Company Number: 2004214697CH

PATIENT
  Sex: Male

DRUGS (2)
  1. BEXTRA [Suspect]
     Dosage: 40 MG, QD, ORAL
     Route: 048
  2. SINTROM [Concomitant]

REACTIONS (1)
  - DERMATITIS ALLERGIC [None]
